FAERS Safety Report 18219766 (Version 5)
Quarter: 2021Q1

REPORT INFORMATION
  Report Type: Report from Study
  Country: US (occurrence: US)
  Receive Date: 20200901
  Receipt Date: 20210210
  Transmission Date: 20210419
  Serious: No
  Sender: FDA-Public Use
  Company Number: NVSC2020US240456

PATIENT
  Sex: Male

DRUGS (1)
  1. COSENTYX [Suspect]
     Active Substance: SECUKINUMAB
     Indication: PSORIASIS
     Dosage: 300 MG, QMO
     Route: 058
     Dates: start: 20200721

REACTIONS (5)
  - Therapeutic product effect incomplete [Recovering/Resolving]
  - Skin discolouration [Recovered/Resolved]
  - Pigmentation disorder [Recovered/Resolved]
  - Paraesthesia [Unknown]
  - Pruritus [Unknown]
